FAERS Safety Report 7725606-3 (Version None)
Quarter: 2011Q3

REPORT INFORMATION
  Report Type: 
  Country: None (occurrence: None)
  Receive Date: 20110830
  Receipt Date: 20110822
  Transmission Date: 20111222
  Serious: Yes (Other)
  Sender: FDA-Public Use
  Company Number: 2011-00970

PATIENT
  Age: 49 Year
  Sex: Male
  Weight: 76.2043 kg

DRUGS (2)
  1. ASPIRIN [Concomitant]
  2. SIMVASTATIN [Suspect]
     Indication: BLOOD CHOLESTEROL ABNORMAL
     Dosage: 5 MG (5 MG,1 IN 1 D),PER ORAL
     Route: 048
     Dates: start: 20110725, end: 20110821

REACTIONS (3)
  - ANGIOEDEMA [None]
  - PRURITUS [None]
  - NODULE [None]
